FAERS Safety Report 25732645 (Version 2)
Quarter: 2025Q3

REPORT INFORMATION
  Report Type: Report from Study
  Country: EU (occurrence: EU)
  Receive Date: 20250827
  Receipt Date: 20250829
  Transmission Date: 20251020
  Serious: Yes (Hospitalization, Other)
  Sender: ABBVIE
  Company Number: EU-ABBVIE-6428018

PATIENT
  Age: 83 Year
  Sex: Female

DRUGS (3)
  1. FOSCARBIDOPA\FOSLEVODOPA [Suspect]
     Active Substance: FOSCARBIDOPA\FOSLEVODOPA
     Indication: Parkinson^s disease
     Route: 058
     Dates: start: 20250820
  2. FOSCARBIDOPA\FOSLEVODOPA [Suspect]
     Active Substance: FOSCARBIDOPA\FOSLEVODOPA
     Route: 058
     Dates: start: 202508, end: 202508
  3. FOSCARBIDOPA\FOSLEVODOPA [Suspect]
     Active Substance: FOSCARBIDOPA\FOSLEVODOPA
     Route: 058
     Dates: start: 202508, end: 20250825

REACTIONS (15)
  - Hypopnoea [Unknown]
  - Pulmonary embolism [Unknown]
  - Hypokinesia [Not Recovered/Not Resolved]
  - On and off phenomenon [Recovering/Resolving]
  - Hallucination [Recovering/Resolving]
  - Fall [Not Recovered/Not Resolved]
  - Muscular weakness [Unknown]
  - Malaise [Unknown]
  - Blood pressure systolic increased [Unknown]
  - Tremor [Recovering/Resolving]
  - Asthenia [Recovering/Resolving]
  - Disorientation [Unknown]
  - Thinking abnormal [Unknown]
  - Cardiac arrest [Unknown]
  - Delirium [Not Recovered/Not Resolved]

NARRATIVE: CASE EVENT DATE: 20250801
